FAERS Safety Report 8816716 (Version 1)
Quarter: 2012Q4

REPORT INFORMATION
  Report Type: Spontaneous
  Country: US (occurrence: None)
  Receive Date: 20121001
  Receipt Date: 20121001
  Transmission Date: 20130627
  Serious: Yes (Other)
  Sender: FDA-Public Use
  Company Number: US-ALSI-201200232

PATIENT
  Age: 54 Year
  Sex: Male

DRUGS (6)
  1. OXYGEN [Suspect]
     Route: 055
  2. OXYGEN [Suspect]
     Route: 055
  3. ISOFLURANE [Concomitant]
  4. MIDAZOLAM [Concomitant]
  5. FENTANYL [Concomitant]
  6. PROPOFOL [Concomitant]

REACTIONS (5)
  - Blister [None]
  - Pleural disorder [None]
  - Procedural complication [None]
  - Device malfunction [None]
  - Accident [None]
